FAERS Safety Report 9670152 (Version 1)
Quarter: 2013Q4

REPORT INFORMATION
  Report Type: Spontaneous
  Country: US (occurrence: None)
  Receive Date: 20131028
  Receipt Date: 20131028
  Transmission Date: 20140711
  Serious: Yes (Hospitalization)
  Sender: FDA-Public Use
  Company Number: 2013038515

PATIENT
  Age: 21 Year
  Sex: Female

DRUGS (1)
  1. PRIVIGEN (IMMUNE GLOBULIN INTRAVENOUS (HUMAN) 10% LIQUID) [Suspect]
     Dosage: (??-JUN-2013 X 5 DAYS),  (20 G QD),
     Dates: start: 201306

REACTIONS (4)
  - Headache [None]
  - Nausea [None]
  - Vomiting [None]
  - Rash [None]
